FAERS Safety Report 7785013-4 (Version None)
Quarter: 2011Q3

REPORT INFORMATION
  Report Type: 
  Country: None (occurrence: None)
  Receive Date: 20110929
  Receipt Date: 20110923
  Transmission Date: 20111222
  Serious: Yes (Death)
  Sender: FDA-Public Use
  Company Number: KR-BRISTOL-MYERS SQUIBB COMPANY-16100323

PATIENT
  Age: 78 Year
  Sex: Female

DRUGS (7)
  1. ERBITUX [Suspect]
     Dosage: INF:4
     Dates: start: 20091205, end: 20100127
  2. MAGNESIUM OXIDE [Concomitant]
     Indication: CONSTIPATION
     Dates: start: 20091021, end: 20100207
  3. FOSAMAX [Concomitant]
     Indication: OSTEOPOROSIS
     Dates: start: 20091021, end: 20100207
  4. URSA [Concomitant]
     Dates: start: 20091021, end: 20100207
  5. PANTOPRAZOLE SODIUM [Concomitant]
     Indication: GASTRITIS
     Dates: start: 20091021, end: 20100207
  6. MACPERAN [Concomitant]
     Indication: NAUSEA
     Dates: start: 20091021, end: 20100207
  7. TRAMADOL HYDROCHLORIDE/ACETAMINOPHEN [Concomitant]
     Indication: PAIN
     Dosage: DOLTRAMACET
     Dates: start: 20091021, end: 20100207

REACTIONS (1)
  - PYREXIA [None]
